FAERS Safety Report 8236981-8 (Version None)
Quarter: 2012Q1

REPORT INFORMATION
  Report Type: 
  Country: None (occurrence: None)
  Receive Date: 20120327
  Receipt Date: 20120321
  Transmission Date: 20120608
  Serious: Yes (Hospitalization)
  Sender: FDA-Public Use
  Company Number: PHEH2012US006383

PATIENT
  Sex: Male

DRUGS (3)
  1. TEGRETOL [Suspect]
     Dosage: 600 MG, TID
     Dates: start: 19940101
  2. COLD MEDICATION [Suspect]
     Dosage: UNK
  3. SIMVASTATIN [Concomitant]
     Dosage: UNK

REACTIONS (4)
  - HEAD INJURY [None]
  - COMA [None]
  - DRUG LEVEL INCREASED [None]
  - ACCIDENT AT WORK [None]
